FAERS Safety Report 6383438-5 (Version None)
Quarter: 2009Q3

REPORT INFORMATION
  Report Type: 
  Country: None (occurrence: None)
  Receive Date: 20090924
  Receipt Date: 20090710
  Transmission Date: 20100115
  Serious: No
  Sender: FDA-Public Use
  Company Number: US-CVT-090423

PATIENT
  Age: 57 Year
  Sex: Female
  Weight: 63.5 kg

DRUGS (11)
  1. RANEXA [Suspect]
     Indication: ANGINA PECTORIS
     Dosage: 500 MG, QD, ORAL : 250 MG, QD, ORAL : 125 MG, QD, ORAL
     Route: 048
     Dates: start: 20090601, end: 20090601
  2. RANEXA [Suspect]
     Indication: MICROVASCULAR ANGINA
     Dosage: 500 MG, QD, ORAL : 250 MG, QD, ORAL : 125 MG, QD, ORAL
     Route: 048
     Dates: start: 20090601, end: 20090601
  3. RANEXA [Suspect]
     Indication: ANGINA PECTORIS
     Dosage: 500 MG, QD, ORAL : 250 MG, QD, ORAL : 125 MG, QD, ORAL
     Route: 048
     Dates: start: 20090701, end: 20090701
  4. RANEXA [Suspect]
     Indication: MICROVASCULAR ANGINA
     Dosage: 500 MG, QD, ORAL : 250 MG, QD, ORAL : 125 MG, QD, ORAL
     Route: 048
     Dates: start: 20090701, end: 20090701
  5. RANEXA [Suspect]
     Indication: ANGINA PECTORIS
     Dosage: 500 MG, QD, ORAL : 250 MG, QD, ORAL : 125 MG, QD, ORAL
     Route: 048
     Dates: start: 20090701
  6. RANEXA [Suspect]
     Indication: MICROVASCULAR ANGINA
     Dosage: 500 MG, QD, ORAL : 250 MG, QD, ORAL : 125 MG, QD, ORAL
     Route: 048
     Dates: start: 20090701
  7. COREG [Concomitant]
  8. LOPID [Concomitant]
  9. NOVOLIN R [Concomitant]
  10. LANTUS [Concomitant]
  11. NITROGLYCERIN [Concomitant]

REACTIONS (3)
  - CONSTIPATION [None]
  - SOMNOLENCE [None]
  - WRONG TECHNIQUE IN DRUG USAGE PROCESS [None]
